FAERS Safety Report 16668570 (Version 1)
Quarter: 2019Q3

REPORT INFORMATION
  Report Type: Spontaneous
  Country: US (occurrence: US)
  Receive Date: 20190620
  Receipt Date: 20190620
  Transmission Date: 20191004
  Serious: Yes (Other)
  Sender: FDA-Public Use
  Company Number: None

PATIENT
  Age: 63 Year
  Sex: Male
  Weight: 90.72 kg

DRUGS (6)
  1. LEVOTHYROXINE. [Concomitant]
     Active Substance: LEVOTHYROXINE
  2. PREDNISONE. [Suspect]
     Active Substance: PREDNISONE
  3. ACYLOVIR [Concomitant]
  4. IMBRUVICA [Suspect]
     Active Substance: IBRUTINIB
     Indication: GRAFT VERSUS HOST DISEASE
     Route: 048
     Dates: start: 201610, end: 20190514
  5. PANTOPRAZOLE [Concomitant]
     Active Substance: PANTOPRAZOLE
  6. ALLOPURINOL. [Concomitant]
     Active Substance: ALLOPURINOL

REACTIONS (9)
  - Chest discomfort [None]
  - Fall [None]
  - Skin laceration [None]
  - Dyspnoea [None]
  - Palpitations [None]
  - Orthostatic hypotension [None]
  - Loss of consciousness [None]
  - Syncope [None]
  - Dizziness [None]

NARRATIVE: CASE EVENT DATE: 20190418
